FAERS Safety Report 11081876 (Version 2)
Quarter: 2015Q2

REPORT INFORMATION
  Report Type: Report from Study
  Country: CO (occurrence: CO)
  Receive Date: 20150501
  Receipt Date: 20150504
  Transmission Date: 20150821
  Serious: Yes (Death, Hospitalization, Other)
  Sender: FDA-Public Use
  Company Number: PHHY2015CO052527

PATIENT
  Sex: Female
  Weight: 70 kg

DRUGS (2)
  1. AFINITOR [Suspect]
     Active Substance: EVEROLIMUS
     Dosage: 1 DF, QD
     Route: 065
  2. AFINITOR [Suspect]
     Active Substance: EVEROLIMUS
     Indication: PRODUCT USED FOR UNKNOWN INDICATION
     Dosage: 0.5 DF, QD
     Route: 065

REACTIONS (8)
  - Asphyxia [Unknown]
  - Wrong technique in drug usage process [Unknown]
  - Metastasis [Fatal]
  - Pain [Unknown]
  - Metastases to neck [Fatal]
  - Pyrexia [Unknown]
  - General physical health deterioration [Unknown]
  - Breast cancer [Fatal]
